FAERS Safety Report 20757498 (Version 1)
Quarter: 2022Q2

REPORT INFORMATION
  Report Type: Report from Study
  Country: MX (occurrence: MX)
  Receive Date: 20220427
  Receipt Date: 20220427
  Transmission Date: 20220721
  Serious: Yes (Other)
  Sender: FDA-Public Use
  Company Number: MX-NOVARTISPH-NVSC2022MX096773

PATIENT
  Age: 59 Year
  Sex: Female
  Weight: 68 kg

DRUGS (3)
  1. METFORMIN HYDROCHLORIDE\VILDAGLIPTIN [Suspect]
     Active Substance: METFORMIN HYDROCHLORIDE\VILDAGLIPTIN
     Indication: Diabetes mellitus
     Dosage: 1 DOSAGE FORM, BID (AROUND 9 YEARS AGO)
     Route: 048
  2. CALTRATE WITH VITAMIN D [Concomitant]
     Active Substance: CALCIUM CARBONATE\CHOLECALCIFEROL
     Indication: Bone disorder
     Dosage: 1 DOSAGE FORM, QD (STARTED 1 MONTH AGO)
     Route: 048
  3. OSSOPAN [Concomitant]
     Indication: Bone disorder
     Dosage: 1 DOSAGE FORM, QD
     Route: 048
     Dates: start: 202108

REACTIONS (5)
  - Costal cartilage fracture [Unknown]
  - Osteoporosis [Not Recovered/Not Resolved]
  - Fall [Unknown]
  - Ligament sprain [Unknown]
  - Cartilage atrophy [Unknown]

NARRATIVE: CASE EVENT DATE: 20210801
